FAERS Safety Report 6273053-6 (Version None)
Quarter: 2009Q3

REPORT INFORMATION
  Report Type: 
  Country: None (occurrence: None)
  Receive Date: 20090715
  Receipt Date: 20090715
  Transmission Date: 20100115
  Serious: Yes (Life-Threatening, Hospitalization, Disabling)
  Sender: FDA-Public Use
  Company Number: None

PATIENT
  Sex: Female
  Weight: 63.5036 kg

DRUGS (1)
  1. THYROID TAB [Suspect]
     Indication: HYPOTHYROIDISM
     Dosage: 60 MG. 4 PER DAY PO
     Route: 048
     Dates: start: 20090101, end: 20090525

REACTIONS (9)
  - ANGER [None]
  - BRONCHITIS [None]
  - DRUG INEFFECTIVE [None]
  - HYPOTHYROIDISM [None]
  - INFLUENZA [None]
  - NAUSEA [None]
  - POISONING [None]
  - PRODUCT FORMULATION ISSUE [None]
  - PRODUCT SUBSTITUTION ISSUE [None]
